FAERS Safety Report 8881460 (Version 1)
Quarter: 2012Q4

REPORT INFORMATION
  Report Type: 
  Country: FR (occurrence: FR)
  Receive Date: 20121102
  Receipt Date: 20121102
  Transmission Date: 20130627
  Serious: Yes (Other)
  Sender: FDA-Public Use
  Company Number: FR-ASTELLAS-2012EU009594

PATIENT
  Age: 81 Year
  Sex: Male

DRUGS (3)
  1. VESICARE [Suspect]
     Dosage: 5 mg, UID/QD
     Route: 048
     Dates: start: 201209, end: 201210
  2. AVODART [Concomitant]
     Dosage: UNK
     Route: 065
  3. XATRAL [Concomitant]
     Dosage: UNK
     Route: 065

REACTIONS (4)
  - Hypotension [Unknown]
  - Vertigo [Unknown]
  - Hallucination [Unknown]
  - Disorientation [Unknown]
